FAERS Safety Report 11760609 (Version 1)
Quarter: 2015Q4

REPORT INFORMATION
  Report Type: Spontaneous
  Country: US (occurrence: US)
  Receive Date: 20151120
  Receipt Date: 20151120
  Transmission Date: 20160304
  Serious: No
  Sender: FDA-Public Use
  Company Number: US-ELI_LILLY_AND_COMPANY-US201211008185

PATIENT
  Age: 69 Year
  Sex: Female

DRUGS (3)
  1. PROLIA [Concomitant]
     Active Substance: DENOSUMAB
     Dosage: UNK, OTHER
  2. FORTEO [Suspect]
     Active Substance: TERIPARATIDE
     Indication: OSTEOPOROSIS
     Dosage: 20 UG, QD
  3. FORTEO [Suspect]
     Active Substance: TERIPARATIDE
     Dosage: 20 UG, QD
     Dates: end: 20120711

REACTIONS (1)
  - Injection site rash [Unknown]
